FAERS Safety Report 10228462 (Version 1)
Quarter: 2014Q2

REPORT INFORMATION
  Report Type: Spontaneous
  Country: JP (occurrence: JP)
  Receive Date: 20140610
  Receipt Date: 20140610
  Transmission Date: 20141212
  Serious: Yes (Other)
  Sender: FDA-Public Use
  Company Number: JP-ABBVIE-14P-087-1246239-00

PATIENT
  Age: 7 Year
  Sex: Male

DRUGS (1)
  1. CLARITH DRY SYRUP [Suspect]
     Indication: OTITIS MEDIA
     Dosage: 1.1 G/DAY (0.55G BID) OR 2.1 G/DAY (1.05 G BID)
     Route: 048
     Dates: start: 20140331

REACTIONS (1)
  - Enuresis [Recovered/Resolved]
